FAERS Safety Report 12909319 (Version 2)
Quarter: 2016Q4

REPORT INFORMATION
  Report Type: Report from Study
  Country: None (occurrence: CA)
  Receive Date: 20161104
  Receipt Date: 20161121
  Transmission Date: 20170207
  Serious: Yes (Other)
  Sender: FDA-Public Use
  Company Number: CA-ABBVIE-16K-028-1770079-00

PATIENT
  Sex: Female

DRUGS (7)
  1. HUMIRA [Suspect]
     Active Substance: ADALIMUMAB
     Route: 058
     Dates: start: 201605
  2. PREDNISONE. [Concomitant]
     Active Substance: PREDNISONE
     Route: 048
     Dates: start: 2016
  3. PREDNISONE. [Concomitant]
     Active Substance: PREDNISONE
     Indication: RHEUMATOID ARTHRITIS
     Route: 048
     Dates: end: 2016
  4. PROLIA [Concomitant]
     Active Substance: DENOSUMAB
     Indication: PRODUCT USED FOR UNKNOWN INDICATION
  5. THIAZIDE [Concomitant]
     Active Substance: UNSPECIFIED INGREDIENT
     Indication: PRODUCT USED FOR UNKNOWN INDICATION
     Dosage: 50MG/25MG HALF-A-TABLET
  6. HUMIRA [Suspect]
     Active Substance: ADALIMUMAB
     Indication: RHEUMATOID ARTHRITIS
     Route: 058
     Dates: start: 20130626
  7. FOLIC ACID. [Concomitant]
     Active Substance: FOLIC ACID
     Indication: PRODUCT USED FOR UNKNOWN INDICATION

REACTIONS (4)
  - Hypoacusis [Recovered/Resolved]
  - Nasopharyngitis [Recovered/Resolved]
  - Malaise [Not Recovered/Not Resolved]
  - Ear infection [Recovered/Resolved]

NARRATIVE: CASE EVENT DATE: 2016
